FAERS Safety Report 6060626-9 (Version None)
Quarter: 2009Q1

REPORT INFORMATION
  Report Type: 
  Country: None (occurrence: None)
  Receive Date: 20090129
  Receipt Date: 20090129
  Transmission Date: 20090719
  Serious: Yes (Other)
  Sender: FDA-Public Use
  Company Number: None

PATIENT
  Sex: Female
  Weight: 79.3795 kg

DRUGS (1)
  1. RYTHMOL [Suspect]
     Indication: HEART RATE IRREGULAR
     Dosage: 225 MG. TWICE DAILY ORAL BEEN ON THIS DRUG 4-5 YEARS
     Route: 048

REACTIONS (4)
  - CHEST DISCOMFORT [None]
  - HEART RATE IRREGULAR [None]
  - MUSCULOSKELETAL DISCOMFORT [None]
  - PAIN IN EXTREMITY [None]
